FAERS Safety Report 9271712 (Version 1)
Quarter: 2013Q2

REPORT INFORMATION
  Report Type: Spontaneous
  Country: US (occurrence: US)
  Receive Date: 20130506
  Receipt Date: 20130506
  Transmission Date: 20140414
  Serious: No
  Sender: FDA-Public Use
  Company Number: US-COVIDIEN/TYCO HEALTHCARE/MALLINCKRODT-T201202508

PATIENT
  Sex: Male
  Weight: 90.7 kg

DRUGS (3)
  1. HYDROCODONE/ACETAMINOPHEN [Suspect]
     Indication: PAIN
     Dosage: 7/5/650 MG 3-4 X QD
  2. LEXAPRO [Concomitant]
     Indication: DEPRESSION
     Dosage: UNK
  3. LISINOPRIL [Concomitant]
     Indication: BLOOD PRESSURE
     Dosage: UNK

REACTIONS (6)
  - Hyperhidrosis [Recovered/Resolved]
  - Neck pain [Recovered/Resolved]
  - Musculoskeletal stiffness [Recovered/Resolved]
  - Asthenia [Recovered/Resolved]
  - Dysgeusia [Recovered/Resolved]
  - Drug ineffective [Recovered/Resolved]
